FAERS Safety Report 8417594-1 (Version None)
Quarter: 2012Q2

REPORT INFORMATION
  Report Type: 
  Country: None (occurrence: None)
  Receive Date: 20120606
  Receipt Date: 20120522
  Transmission Date: 20120825
  Serious: Yes (Other)
  Sender: FDA-Public Use
  Company Number: CHPA2012US010495

PATIENT
  Age: 69 Year
  Sex: Female

DRUGS (4)
  1. ACETAMINOPHEN [Concomitant]
     Dosage: 0.5 DF, UNK
  2. COUMADIN [Concomitant]
  3. EXCEDRIN (MIGRAINE) [Suspect]
     Indication: MIGRAINE
     Dosage: UNK, OCCASIONALLY
     Route: 048
     Dates: start: 20060101, end: 20100101
  4. EXCEDRIN TENSION HEADACHE CAPLETS [Suspect]
     Indication: ARTHRITIS
     Dosage: 1 DF, PRN
     Route: 048
     Dates: start: 20100101

REACTIONS (6)
  - HEAD INJURY [None]
  - BACK PAIN [None]
  - PAIN [None]
  - BACK DISORDER [None]
  - FALL [None]
  - CONTUSION [None]
